FAERS Safety Report 10926249 (Version 1)
Quarter: 2015Q1

REPORT INFORMATION
  Report Type: Spontaneous
  Country: US (occurrence: None)
  Receive Date: 20150129
  Receipt Date: 20150129
  Transmission Date: 20150721
  Serious: No
  Sender: FDA-Public Use
  Company Number: A-US2014-100063

PATIENT
  Age: 55 Year
  Sex: Female

DRUGS (3)
  1. OPSUMIT [Suspect]
     Active Substance: MACITENTAN
     Indication: COR PULMONALE CHRONIC
     Route: 048
     Dates: start: 20140721
  2. VELETRI [Suspect]
     Active Substance: EPOPROSTENOL
     Indication: COR PULMONALE CHRONIC
     Route: 042
     Dates: start: 20140530
  3. ADCIRCA [Concomitant]
     Active Substance: TADALAFIL

REACTIONS (10)
  - Concomitant disease aggravated [None]
  - Neuropathy peripheral [None]
  - Rash erythematous [None]
  - Pain in jaw [None]
  - Scleroderma [None]
  - Catheter site pruritus [None]
  - Pain in extremity [None]
  - Rash [None]
  - Pruritus [None]
  - Catheter site inflammation [None]

NARRATIVE: CASE EVENT DATE: 20140606
